FAERS Safety Report 23966431 (Version 1)
Quarter: 2024Q2

REPORT INFORMATION
  Report Type: Spontaneous
  Country: US (occurrence: US)
  Receive Date: 20240612
  Receipt Date: 20240612
  Transmission Date: 20240716
  Serious: No
  Sender: FDA-Public Use
  Company Number: US-IMMUNOGEN, INC.-US-IMGN-24-00267

PATIENT
  Age: 72 Year
  Sex: Female
  Weight: 90 kg

DRUGS (2)
  1. ELAHERE [Suspect]
     Active Substance: MIRVETUXIMAB SORAVTANSINE-GYNX
     Indication: Ovarian cancer
     Dosage: 6 MILLIGRAM/KILOGRAM, CYCLIC
     Route: 042
     Dates: start: 20240213
  2. ELAHERE [Suspect]
     Active Substance: MIRVETUXIMAB SORAVTANSINE-GYNX
     Dosage: 5 MILLIGRAM/KILOGRAM, CYCLIC
     Route: 042
     Dates: start: 20240409

REACTIONS (1)
  - Corneal defect [Recovered/Resolved]

NARRATIVE: CASE EVENT DATE: 20240321
